FAERS Safety Report 18740438 (Version 8)
Quarter: 2021Q2

REPORT INFORMATION
  Report Type: Spontaneous
  Country: IN (occurrence: IN)
  Receive Date: 20210114
  Receipt Date: 20210621
  Transmission Date: 20210717
  Serious: Yes (Hospitalization, Other)
  Sender: FDA-Public Use
  Company Number: IN-PFIZER INC-2021019761

PATIENT
  Age: 48 Year
  Sex: Female
  Weight: 70 kg

DRUGS (6)
  1. RANTAC [Concomitant]
     Active Substance: RANITIDINE HYDROCHLORIDE
     Dosage: 100 MG
     Route: 042
  2. GRANISET [Concomitant]
     Dosage: UNK
     Route: 042
  3. CRIZALK [Suspect]
     Active Substance: CRIZOTINIB
     Indication: NON-SMALL CELL LUNG CANCER STAGE IV
     Dosage: 250 MG, 2X/DAY
     Route: 048
     Dates: start: 20200801
  4. CRIZALK [Suspect]
     Active Substance: CRIZOTINIB
     Dosage: 250 MG, 2X/DAY
     Route: 048
     Dates: start: 20200828
  5. DECDAN [DEXAMETHASONE] [Concomitant]
     Active Substance: DEXAMETHASONE
     Dosage: 8 MG
     Route: 042
  6. WYSOLONE [Concomitant]
     Active Substance: PREDNISOLONE
     Dosage: UNK

REACTIONS (18)
  - Sinus arrest [Unknown]
  - Hyperkalaemia [Unknown]
  - Periorbital swelling [Unknown]
  - Heart rate decreased [Unknown]
  - Swelling face [Unknown]
  - Peripheral swelling [Unknown]
  - Bradyarrhythmia [Unknown]
  - Syncope [Unknown]
  - Mouth ulceration [Unknown]
  - Uterine leiomyoma [Unknown]
  - Vertigo [Unknown]
  - Hypoaesthesia [Unknown]
  - Adrenal insufficiency [Unknown]
  - Neoplasm progression [Unknown]
  - Extrasystoles [Unknown]
  - Liver function test increased [Recovering/Resolving]
  - Virilism [Unknown]
  - Hirsutism [Unknown]
